FAERS Safety Report 8235713-7 (Version None)
Quarter: 2012Q1

REPORT INFORMATION
  Report Type: 
  Country: None (occurrence: None)
  Receive Date: 20120326
  Receipt Date: 20120320
  Transmission Date: 20120608
  Serious: Yes (Hospitalization)
  Sender: FDA-Public Use
  Company Number: PHHY2012FR025370

PATIENT
  Age: 87 Year
  Sex: Female
  Weight: 50 kg

DRUGS (11)
  1. FLUTICASONE PROPIONATE/SALMETEROL [Concomitant]
     Dosage: UNK UKN, UNK
     Dates: start: 20070101
  2. VALSARTAN [Concomitant]
     Dosage: UNK UKN, UNK
     Dates: start: 20110101
  3. ZOLEDRONOC ACID [Suspect]
     Indication: OSTEOPOROSIS
     Dosage: UNK UKN, UNK
     Route: 042
     Dates: start: 20111122
  4. CANDESARTAN CILEXETIL [Concomitant]
     Dosage: UNK UKN, UNK
     Dates: start: 20110101, end: 20111201
  5. CLONAZEPAM [Concomitant]
     Dosage: UNK UKN, UNK
     Dates: start: 20070101
  6. VITAMIN D [Concomitant]
     Dosage: UNK UKN, UNK
  7. FIXICAL [Concomitant]
     Dosage: UNK UKN, UNK
  8. DOMPERIDONE [Concomitant]
     Dosage: UNK UKN, UNK
  9. LUTEINE [Concomitant]
     Dosage: UNK UKN, UNK
     Dates: start: 20040101
  10. ASPIRIN [Concomitant]
     Dosage: UNK UKN, UNK
     Dates: start: 20070101
  11. TRAMADOL HYDROCHLORIDE [Concomitant]
     Dosage: UNK UKN, UNK

REACTIONS (1)
  - CHEST PAIN [None]
